FAERS Safety Report 4901157-6 (Version None)
Quarter: 2006Q1

REPORT INFORMATION
  Report Type: 
  Country: None (occurrence: None)
  Receive Date: 20060201
  Receipt Date: 20060111
  Transmission Date: 20060701
  Serious: Yes (Death, Hospitalization)
  Sender: FDA-Public Use
  Company Number: US200601000911

PATIENT
  Age: 73 Year
  Sex: Male

DRUGS (4)
  1. ALIMTA [Suspect]
     Indication: PLEURAL MESOTHELIOMA MALIGNANT
     Dosage: 700 MG, OTHER, INTRAVENOUS
     Route: 042
     Dates: start: 20040401, end: 20041222
  2. ALIMTA [Suspect]
     Indication: PLEURAL MESOTHELIOMA MALIGNANT
     Dosage: 700 MG, OTHER, INTRAVENOUS
     Route: 042
     Dates: start: 20050215, end: 20050511
  3. CISPLATIN [Concomitant]
  4. VITAMIN B12 [Concomitant]

REACTIONS (4)
  - DISEASE PROGRESSION [None]
  - MALIGNANT NEOPLASM PROGRESSION [None]
  - NAUSEA [None]
  - VOMITING [None]
